FAERS Safety Report 4434322-5 (Version None)
Quarter: 2004Q3

REPORT INFORMATION
  Report Type: 
  Country: None (occurrence: None)
  Receive Date: 20040825
  Receipt Date: 20040820
  Transmission Date: 20050211
  Serious: Yes (Hospitalization)
  Sender: FDA-Public Use
  Company Number: HQWYE702202AUG04

PATIENT
  Age: 1 Hour
  Sex: Female
  Weight: 3.46 kg

DRUGS (4)
  1. EFFEXOR [Suspect]
     Indication: DEPRESSION
     Dosage: SEE IMAGE
     Route: 048
     Dates: start: 19990101
  2. FIORICET [Concomitant]
  3. PHENERGAN [Concomitant]
  4. REGLAN [Concomitant]

REACTIONS (18)
  - BLOOD GLUCOSE DECREASED [None]
  - CAESAREAN SECTION [None]
  - CARDIAC MURMUR [None]
  - CHEST X-RAY ABNORMAL [None]
  - CONGENITAL MITRAL VALVE INCOMPETENCE [None]
  - CONGENITAL VENTRICULAR SEPTAL DEFECT [None]
  - CSF WHITE BLOOD CELL COUNT POSITIVE [None]
  - DRUG EXPOSURE DURING PREGNANCY [None]
  - HEAD LAG [None]
  - HEART RATE ABNORMAL [None]
  - HEART RATE INCREASED [None]
  - HYPOTONIA NEONATAL [None]
  - MYOCLONUS [None]
  - NEONATAL APNOEIC ATTACK [None]
  - NEONATAL DISORDER [None]
  - RED BLOOD CELLS CSF POSITIVE [None]
  - SUBARACHNOID HAEMORRHAGE NEONATAL [None]
  - TRISOMY 21 [None]
